FAERS Safety Report 9412020 (Version 1)
Quarter: 2020Q3

REPORT INFORMATION
  Report Type: Report from Study
  Country: RU (occurrence: RU)
  Receive Date: 20130722
  Receipt Date: 20130722
  Transmission Date: 20201105
  Serious: Yes (Hospitalization)
  Sender: FDA-Public Use
  Company Number: RU-JNJFOC-20100800685

PATIENT
  Age: 52 Year
  Sex: Female
  Weight: 72.2 kg

DRUGS (5)
  1. LISINOPRIL. [Concomitant]
     Active Substance: LISINOPRIL
     Route: 048
     Dates: start: 200902
  2. NIMESULIDE [Concomitant]
     Active Substance: NIMESULIDE
     Indication: PSORIATIC ARTHROPATHY
     Route: 048
     Dates: start: 201003
  3. USTEKINUMAB [Suspect]
     Active Substance: USTEKINUMAB
     Indication: PSORIATIC ARTHROPATHY
     Route: 058
     Dates: start: 20100504, end: 20100601
  4. USTEKINUMAB [Suspect]
     Active Substance: USTEKINUMAB
     Route: 058
  5. FOLIC ACID. [Concomitant]
     Active Substance: FOLIC ACID
     Indication: PSORIATIC ARTHROPATHY
     Route: 048
     Dates: start: 200902

REACTIONS (3)
  - Pancreatitis chronic [Recovered/Resolved]
  - Gastritis [Recovered/Resolved]
  - Cholecystitis [Recovered/Resolved]

NARRATIVE: CASE EVENT DATE: 20100801
